FAERS Safety Report 11071552 (Version 1)
Quarter: 2015Q2

REPORT INFORMATION
  Report Type: Report from Study
  Country: US (occurrence: US)
  Receive Date: 20150428
  Receipt Date: 20150428
  Transmission Date: 20150821
  Serious: Yes (Death, Other)
  Sender: FDA-Public Use
  Company Number: US-ROCHE-1567323

PATIENT

DRUGS (3)
  1. CYCLOSPORINE. [Suspect]
     Active Substance: CYCLOSPORINE
     Indication: PROPHYLAXIS AGAINST TRANSPLANT REJECTION
     Dosage: CSP LEVELS WERE TARGETED TO 400 TO 500 NG/ML FOR THE FIRST MONTH AND 300 NG/ML THERE AFTER. ?CSP AND
     Route: 048
  2. FLUDARABINE [Suspect]
     Active Substance: FLUDARABINE PHOSPHATE
     Indication: PROPHYLAXIS AGAINST TRANSPLANT REJECTION
     Route: 042
  3. MYCOPHENOLATE MOFETIL. [Suspect]
     Active Substance: MYCOPHENOLATE MOFETIL
     Indication: PROPHYLAXIS AGAINST TRANSPLANT REJECTION
     Dosage: 4 TO 6 HOURS AFTER HCT ON DAY 0.?ADMINISTERED INTRAVENOUSLY IF PATIENTS WERE NOT ABLE TO TOLERATE OR
     Route: 048

REACTIONS (45)
  - Cardiac failure congestive [Unknown]
  - Depression [Unknown]
  - Asthenia [Unknown]
  - Azotaemia [Unknown]
  - Nausea [Unknown]
  - Vomiting [Unknown]
  - Hyperbilirubinaemia [Unknown]
  - Transaminases increased [Unknown]
  - Cerebrovascular accident [Unknown]
  - Pneumonia [Unknown]
  - Hypoxia [Unknown]
  - Epstein-Barr virus associated lymphoproliferative disorder [Unknown]
  - Hypotension [Unknown]
  - Arrhythmia supraventricular [Unknown]
  - Stomatitis [Unknown]
  - Haematuria [Unknown]
  - Mental status changes [Unknown]
  - Lung infiltration [Unknown]
  - Renal tubular acidosis [Unknown]
  - Acute respiratory distress syndrome [Fatal]
  - Sepsis [Fatal]
  - Hypertension [Unknown]
  - Deep vein thrombosis [Unknown]
  - Inappropriate antidiuretic hormone secretion [Unknown]
  - Diarrhoea [Unknown]
  - Hypoalbuminaemia [Unknown]
  - Hyperglycaemia [Unknown]
  - Neuropathy peripheral [Unknown]
  - Respiratory failure [Unknown]
  - Chest pain [Unknown]
  - Conjunctival haemorrhage [Unknown]
  - Blood lactate dehydrogenase increased [Unknown]
  - Electrolyte imbalance [Unknown]
  - Insomnia [Unknown]
  - Dyspnoea [Unknown]
  - Cytomegalovirus infection [Unknown]
  - Subdural haematoma [Unknown]
  - Pleural effusion [Unknown]
  - Dysuria [Unknown]
  - Infarction [Unknown]
  - Gastrointestinal haemorrhage [Unknown]
  - Cardiac arrest [Unknown]
  - Constipation [Unknown]
  - Seizure [Unknown]
  - Bladder spasm [Unknown]
